FAERS Safety Report 18863592 (Version 1)
Quarter: 2021Q1

REPORT INFORMATION
  Report Type: Spontaneous
  Country: VE (occurrence: VE)
  Receive Date: 20210208
  Receipt Date: 20210208
  Transmission Date: 20210420
  Serious: Yes (Other)
  Sender: FDA-Public Use
  Company Number: NVSC2021VE027308

PATIENT
  Sex: Male
  Weight: 60 kg

DRUGS (1)
  1. TRILEPTAL [Suspect]
     Active Substance: OXCARBAZEPINE
     Indication: CEREBROVASCULAR ACCIDENT
     Dosage: 300 MG, QD
     Route: 048
     Dates: start: 200609

REACTIONS (4)
  - Product use in unapproved indication [Unknown]
  - Hypertensive crisis [Unknown]
  - Vertigo [Unknown]
  - Dizziness [Unknown]
